FAERS Safety Report 7772155-2 (Version None)
Quarter: 2011Q3

REPORT INFORMATION
  Report Type: 
  Country: None (occurrence: None)
  Receive Date: 20110922
  Receipt Date: 20101118
  Transmission Date: 20111222
  Serious: Yes (Other)
  Sender: FDA-Public Use
  Company Number: US-ASTRAZENECA-2010SE55093

PATIENT
  Age: 1007 Month
  Sex: Male

DRUGS (2)
  1. SEROQUEL [Suspect]
     Indication: DEMENTIA
     Route: 048
     Dates: start: 20090701, end: 20100701
  2. SEROQUEL [Suspect]
     Indication: AGITATION
     Route: 048
     Dates: start: 20090701, end: 20100701

REACTIONS (1)
  - CONVULSION [None]
